FAERS Safety Report 9173190 (Version 2)
Quarter: 2013Q2

REPORT INFORMATION
  Report Type: Spontaneous
  Country: US (occurrence: None)
  Receive Date: 20130315
  Receipt Date: 20130418
  Transmission Date: 20140414
  Serious: Yes (Hospitalization)
  Sender: FDA-Public Use
  Company Number: UTC-029986

PATIENT
  Age: 5 Year
  Sex: Female
  Weight: 18.18 kg

DRUGS (3)
  1. REMODULIN [Suspect]
     Indication: PULMONARY ARTERIAL HYPERTENSION
     Dosage: 354.096 UG/KG (0.2459 UG/KG,L IN 1 MIN),INTRAVENOUS DRIP
     Route: 041
     Dates: start: 200910
  2. REVATIO(SILDENAFIL CITRATE)(UNKNOWN) [Concomitant]
  3. LETAIRIS(AMBRISENTAN)(UNKNOWN) [Concomitant]

REACTIONS (4)
  - Influenza [None]
  - Device related infection [None]
  - Drug administration error [None]
  - Malaise [None]
